FAERS Safety Report 15752082 (Version 5)
Quarter: 2019Q1

REPORT INFORMATION
  Report Type: Report from Study
  Country: CO (occurrence: CO)
  Receive Date: 20181221
  Receipt Date: 20190318
  Transmission Date: 20190417
  Serious: Yes (Hospitalization, Other)
  Sender: FDA-Public Use
  Company Number: CO-ACTELION-A-CH2018-181629

PATIENT
  Age: 80 Year
  Sex: Female
  Weight: 44 kg

DRUGS (3)
  1. OPSUMIT [Suspect]
     Active Substance: MACITENTAN
     Dosage: 10 MG, QD
     Route: 048
     Dates: start: 20190127
  2. TRAMADOL. [Suspect]
     Active Substance: TRAMADOL
     Indication: PAIN IN EXTREMITY
     Route: 065
  3. OPSUMIT [Suspect]
     Active Substance: MACITENTAN
     Indication: PULMONARY ARTERIAL HYPERTENSION
     Dosage: 10 MG, QD
     Route: 048
     Dates: start: 20181102, end: 20181202

REACTIONS (22)
  - Diarrhoea [Recovering/Resolving]
  - Inflammation [Recovered/Resolved]
  - Abdominal pain [Recovering/Resolving]
  - Vomiting [Not Recovered/Not Resolved]
  - Defaecation urgency [Not Recovered/Not Resolved]
  - Fall [Not Recovered/Not Resolved]
  - Contusion [Not Recovered/Not Resolved]
  - Choking [Recovering/Resolving]
  - Presyncope [Recovering/Resolving]
  - Fat intolerance [Recovering/Resolving]
  - Syncope [Not Recovered/Not Resolved]
  - Abdominal pain upper [Recovering/Resolving]
  - Feeling abnormal [Recovering/Resolving]
  - Dizziness [Not Recovered/Not Resolved]
  - Gastroenteritis viral [Recovering/Resolving]
  - Clavicle fracture [Not Recovered/Not Resolved]
  - Dyspnoea [Recovering/Resolving]
  - Limb injury [Not Recovered/Not Resolved]
  - Pain in extremity [Not Recovered/Not Resolved]
  - Asphyxia [Recovering/Resolving]
  - Product availability issue [Not Recovered/Not Resolved]
  - Monoplegia [Recovering/Resolving]

NARRATIVE: CASE EVENT DATE: 20181102
